FAERS Safety Report 18190925 (Version 1)
Quarter: 2020Q3

REPORT INFORMATION
  Report Type: Spontaneous
  Country: US (occurrence: US)
  Receive Date: 20200825
  Receipt Date: 20200825
  Transmission Date: 20201103
  Serious: Yes (Life-Threatening, Hospitalization)
  Sender: FDA-Public Use
  Company Number: US-EMCURE PHARMACEUTICALS LTD-2020-EPL-001135

PATIENT
  Age: 25 Year
  Sex: Male
  Weight: 80 kg

DRUGS (22)
  1. FLUOXETINE [Interacting]
     Active Substance: FLUOXETINE HYDROCHLORIDE
     Dosage: 10 MILLIGRAM, QD
  2. FENTANYL. [Interacting]
     Active Substance: FENTANYL
     Dosage: 100 MICROGRAM
     Route: 042
  3. PROPOFOL. [Concomitant]
     Active Substance: PROPOFOL
     Route: 042
  4. METHYLTHIONINIUM CHLORIDE [Interacting]
     Active Substance: METHYLENE BLUE
     Indication: PRODUCT USED FOR UNKNOWN INDICATION
     Dosage: 100 MG WAS INTRAVENOUSLY ADMINISTERED TWICE
     Route: 042
  5. MORPHINE [Concomitant]
     Active Substance: MORPHINE
  6. SUCCINYLCHOLINE CHLORIDE. [Concomitant]
     Active Substance: SUCCINYLCHOLINE CHLORIDE
     Route: 042
  7. CISATRACURIUM. [Concomitant]
     Active Substance: CISATRACURIUM
     Route: 042
  8. SEVOFLURANE. [Concomitant]
     Active Substance: SEVOFLURANE
     Dosage: UNK
  9. METRONIDAZOLE. [Interacting]
     Active Substance: METRONIDAZOLE
     Indication: PRODUCT USED FOR UNKNOWN INDICATION
     Route: 042
  10. NEOSTIGMINE. [Concomitant]
     Active Substance: NEOSTIGMINE METHYLSULFATE
     Route: 042
  11. HALOPERIDOL. [Concomitant]
     Active Substance: HALOPERIDOL
     Route: 042
  12. ONDANSETRON [Interacting]
     Active Substance: ONDANSETRON
     Indication: PRODUCT USED FOR UNKNOWN INDICATION
     Dosage: 4 MILLIGRAM
     Route: 042
  13. GLYCOPYRRONIUM [Concomitant]
     Active Substance: GLYCOPYRRONIUM
     Route: 042
  14. FLUOXETINE [Suspect]
     Active Substance: FLUOXETINE HYDROCHLORIDE
     Indication: DEPRESSION
     Dosage: 40 MG 1 DOSE PER 1 D
  15. FENTANYL. [Interacting]
     Active Substance: FENTANYL
     Indication: PAIN
     Dosage: 50 MICROGRAM
     Route: 042
  16. OXYGEN. [Concomitant]
     Active Substance: OXYGEN
  17. ETOMIDATE. [Concomitant]
     Active Substance: ETOMIDATE
     Route: 042
  18. ERTAPENEM. [Concomitant]
     Active Substance: ERTAPENEM SODIUM
     Indication: ANTIBIOTIC PROPHYLAXIS
  19. CEFAZOLIN [Concomitant]
     Active Substance: CEFAZOLIN
     Route: 042
  20. METOCLOPRAMIDE. [Interacting]
     Active Substance: METOCLOPRAMIDE
     Indication: PRODUCT USED FOR UNKNOWN INDICATION
     Dosage: 10 MILLIGRAM
     Route: 042
  21. HYDROMORPHONE [Concomitant]
     Active Substance: HYDROMORPHONE
     Route: 042
  22. MIDAZOLAM. [Concomitant]
     Active Substance: MIDAZOLAM
     Route: 042

REACTIONS (8)
  - Pseudomonal sepsis [Unknown]
  - Appendicitis perforated [Unknown]
  - Serotonin syndrome [Unknown]
  - Blood creatinine increased [Recovered/Resolved]
  - White blood cell count increased [Unknown]
  - Drug interaction [Unknown]
  - Rhabdomyolysis [Unknown]
  - Metabolic acidosis [Unknown]
